FAERS Safety Report 6081759-7 (Version None)
Quarter: 2009Q1

REPORT INFORMATION
  Report Type: 
  Country: None (occurrence: None)
  Receive Date: 20090218
  Receipt Date: 20090205
  Transmission Date: 20090719
  Serious: Yes (Hospitalization)
  Sender: FDA-Public Use
  Company Number: FR-PFIZER INC-2009169307

PATIENT

DRUGS (5)
  1. XANAX [Suspect]
     Indication: PREMEDICATION
     Route: 048
     Dates: start: 20080707, end: 20080707
  2. CEFAZOLIN [Suspect]
     Indication: ANTIBIOTIC PROPHYLAXIS
     Route: 042
     Dates: start: 20080707, end: 20080707
  3. MIDAZOLAM HCL [Suspect]
     Indication: PREMEDICATION
     Route: 042
     Dates: start: 20080707, end: 20080707
  4. METHYLPREDNISOLONE [Concomitant]
     Route: 042
     Dates: start: 20080707, end: 20080707
  5. EPINEPHRINE [Concomitant]
     Route: 042
     Dates: start: 20080707, end: 20080707

REACTIONS (3)
  - ERYTHEMA [None]
  - HYPOTENSION [None]
  - TACHYCARDIA [None]
